FAERS Safety Report 14843136 (Version 1)
Quarter: 2018Q2

REPORT INFORMATION
  Report Type: Report from Study
  Country: JP (occurrence: JP)
  Receive Date: 20180503
  Receipt Date: 20180503
  Transmission Date: 20180711
  Serious: Yes (Hospitalization)
  Sender: FDA-Public Use
  Company Number: PHHO2013JP017098

PATIENT
  Age: 69 Year
  Sex: Male
  Weight: 57 kg

DRUGS (1)
  1. TAFINLAR [Suspect]
     Active Substance: DABRAFENIB MESYLATE
     Indication: MALIGNANT MELANOMA
     Dosage: 150 MG, BID
     Route: 048
     Dates: start: 20130226

REACTIONS (1)
  - Myocardial ischaemia [Recovered/Resolved]

NARRATIVE: CASE EVENT DATE: 20130610
